FAERS Safety Report 22312679 (Version 1)
Quarter: 2023Q2

REPORT INFORMATION
  Report Type: Spontaneous
  Country: US (occurrence: US)
  Receive Date: 20230512
  Receipt Date: 20230512
  Transmission Date: 20230721
  Serious: No
  Sender: FDA-Public Use
  Company Number: US-ABBVIE-4741956

PATIENT

DRUGS (1)
  1. SYNTHROID [Suspect]
     Active Substance: LEVOTHYROXINE SODIUM
     Indication: Product used for unknown indication
     Dosage: DETERIORATING SYNTHROID?FORM STRENGTH: 0.112 MILLIGRAM

REACTIONS (5)
  - Drug ineffective [Unknown]
  - Nervousness [Not Recovered/Not Resolved]
  - Adverse drug reaction [Unknown]
  - Asthenia [Unknown]
  - Mobility decreased [Unknown]
